FAERS Safety Report 4917202-8 (Version None)
Quarter: 2006Q1

REPORT INFORMATION
  Report Type: 
  Country: None (occurrence: None)
  Receive Date: 20060216
  Receipt Date: 20060216
  Transmission Date: 20060701
  Serious: Yes (Hospitalization, Other)
  Sender: FDA-Public Use
  Company Number: None

PATIENT
  Sex: Female
  Weight: 56.2 kg

DRUGS (2)
  1. DAUNORUBICIN [Suspect]
     Indication: ACUTE MYELOID LEUKAEMIA
     Dosage: 420 MG
     Dates: end: 20051120
  2. ETOPOSIDE [Suspect]
     Dosage: 468 MG
     Dates: end: 20051120

REACTIONS (7)
  - DYSPHAGIA [None]
  - MOUTH HAEMORRHAGE [None]
  - MUCOSAL EXFOLIATION [None]
  - MUCOSAL INFLAMMATION [None]
  - OPEN WOUND [None]
  - ORAL INTAKE REDUCED [None]
  - TONGUE DISORDER [None]
